FAERS Safety Report 9469667 (Version 1)
Quarter: 2013Q3

REPORT INFORMATION
  Report Type: Spontaneous
  Country: US (occurrence: None)
  Receive Date: 20130820
  Receipt Date: 20130820
  Transmission Date: 20140515
  Serious: No
  Sender: FDA-Public Use
  Company Number: None

PATIENT
  Sex: Male

DRUGS (1)
  1. RIBAVIRIN CAPSULES [Suspect]
     Indication: HEPATITIS C
     Route: 048
     Dates: start: 20130314

REACTIONS (4)
  - Hypoaesthesia [None]
  - Insomnia [None]
  - Stomatitis [None]
  - Haematochezia [None]
